FAERS Safety Report 5258725-4 (Version None)
Quarter: 2007Q1

REPORT INFORMATION
  Report Type: 
  Country: None (occurrence: None)
  Receive Date: 20070308
  Receipt Date: 20070305
  Transmission Date: 20070707
  Serious: Yes (Death)
  Sender: FDA-Public Use
  Company Number: GB-JNJFOC-20061006003

PATIENT

DRUGS (7)
  1. REMICADE [Suspect]
  2. REMICADE [Suspect]
  3. REMICADE [Suspect]
     Indication: DRUG EXPOSURE DURING PREGNANCY
  4. AZATHIOPRINE [Concomitant]
     Route: 065
  5. NAPROXEN [Concomitant]
     Route: 065
  6. RANITIDINE [Concomitant]
     Route: 065
  7. DIHYDROCODEINE BITARTRATE INJ [Concomitant]
     Route: 065

REACTIONS (1)
  - INTRA-UTERINE DEATH [None]
